FAERS Safety Report 7972681 (Version 3)
Quarter: 2012Q4

REPORT INFORMATION
  Report Type: 
  Country: US (occurrence: US)
  Receive Date: 20110603
  Receipt Date: 20121031
  Transmission Date: 20130627
  Serious: Yes (Hospitalization)
  Sender: FDA-Public Use
  Company Number: US-BAYER-2010-002112

PATIENT
  Age: 40 Year
  Sex: Female
  Weight: 52.15 kg

DRUGS (6)
  1. YASMIN [Suspect]
     Indication: ORAL CONTRACEPTION
     Dosage: UNK
     Dates: start: 200304, end: 200711
  2. YAZ [Suspect]
     Indication: ORAL CONTRACEPTION
     Dosage: UNK
     Dates: start: 200304, end: 200711
  3. AMBIEN [Concomitant]
     Dosage: 10 mg, QD
  4. XANAX [Concomitant]
     Dosage: 0.25 mg 1-2 tabs, PRN
  5. PROTONIX [Concomitant]
  6. ZOLOFT [Concomitant]
     Dosage: 12.5 mg, QD

REACTIONS (4)
  - Angina unstable [None]
  - Myocardial infarction [None]
  - Mental disorder [None]
  - Mental disorder [None]
